FAERS Safety Report 5100388-2 (Version None)
Quarter: 2006Q3

REPORT INFORMATION
  Report Type: 
  Country: None (occurrence: None)
  Receive Date: 20060731
  Receipt Date: 20060523
  Transmission Date: 20061208
  Serious: No
  Sender: FDA-Public Use
  Company Number: 2006PV014356

PATIENT
  Age: 36 Year
  Sex: Female
  Weight: 61.2356 kg

DRUGS (1)
  1. BYETTA [Suspect]
     Indication: METABOLIC SYNDROME
     Dosage: 5 MCG; BID; SC
     Route: 058
     Dates: start: 20060101, end: 20060521

REACTIONS (5)
  - BLOOD GLUCOSE DECREASED [None]
  - FEELING HOT [None]
  - TREMOR [None]
  - VERTIGO [None]
  - WEIGHT DECREASED [None]
